FAERS Safety Report 8042026-5 (Version None)
Quarter: 2012Q1

REPORT INFORMATION
  Report Type: 
  Country: None (occurrence: None)
  Receive Date: 20120112
  Receipt Date: 20120104
  Transmission Date: 20120608
  Serious: Yes (Hospitalization)
  Sender: FDA-Public Use
  Company Number: US-US-EMD SERONO, INC.-232781J10USA

PATIENT
  Sex: Male
  Weight: 75 kg

DRUGS (3)
  1. REBIF [Suspect]
     Indication: MULTIPLE SCLEROSIS
     Route: 058
     Dates: start: 20030627
  2. HIGH CHOLESTEROL MEDICATION [Concomitant]
     Indication: BLOOD CHOLESTEROL INCREASED
     Dates: start: 19830101
  3. LOPRESSOR [Concomitant]
     Indication: HYPERTENSION

REACTIONS (7)
  - HEPATIC ENZYME INCREASED [None]
  - LOW DENSITY LIPOPROTEIN INCREASED [None]
  - HICCUPS [None]
  - BLOOD PRESSURE DIASTOLIC INCREASED [None]
  - PROSTATOMEGALY [None]
  - MULTIPLE SCLEROSIS RELAPSE [None]
  - CEREBROVASCULAR ACCIDENT [None]
